FAERS Safety Report 15312443 (Version 3)
Quarter: 2018Q4

REPORT INFORMATION
  Report Type: Spontaneous
  Country: US (occurrence: US)
  Receive Date: 20180823
  Receipt Date: 20181009
  Transmission Date: 20190204
  Serious: Yes (Other)
  Sender: FDA-Public Use
  Company Number: US-GLAXOSMITHKLINE-US2018GSK150662

PATIENT
  Age: 57 Year
  Sex: Female

DRUGS (3)
  1. ANORO ELLIPTA [Interacting]
     Active Substance: UMECLIDINIUM BROMIDE\VILANTEROL TRIFENATATE
     Indication: CHRONIC OBSTRUCTIVE PULMONARY DISEASE
     Dosage: UNK UNK, U
  2. VENTOLIN HFA [Suspect]
     Active Substance: ALBUTEROL SULFATE
     Indication: ASTHMA
     Dosage: UNK
     Dates: start: 2011
  3. TRELEGY ELLIPTA [Interacting]
     Active Substance: FLUTICASONE FUROATE\UMECLIDINIUM BROMIDE\VILANTEROL TRIFENATATE
     Indication: ASTHMA
     Dosage: 100 MCG / 62.5-25 MCG
     Dates: start: 20180726

REACTIONS (9)
  - Retching [Not Recovered/Not Resolved]
  - Choking [Unknown]
  - Product use in unapproved indication [Unknown]
  - Labelled drug-drug interaction medication error [Unknown]
  - Hyperhidrosis [Not Recovered/Not Resolved]
  - Feeling hot [Not Recovered/Not Resolved]
  - Dyspnoea [Not Recovered/Not Resolved]
  - Secretion discharge [Not Recovered/Not Resolved]
  - Cough [Not Recovered/Not Resolved]

NARRATIVE: CASE EVENT DATE: 20180726
